FAERS Safety Report 11659891 (Version 3)
Quarter: 2016Q1

REPORT INFORMATION
  Report Type: Spontaneous
  Country: FR (occurrence: FR)
  Receive Date: 20151026
  Receipt Date: 20160314
  Transmission Date: 20160525
  Serious: Yes (Congenital Anomaly, Other)
  Sender: FDA-Public Use
  Company Number: FR-ABBVIE-15P-056-1487740-00

PATIENT
  Age: 5 Year
  Sex: Male

DRUGS (1)
  1. DEPAKINE [Suspect]
     Active Substance: VALPROATE SODIUM
     Indication: MATERNAL EXPOSURE TIMING UNSPECIFIED
     Route: 064

REACTIONS (11)
  - Multiple congenital abnormalities [Unknown]
  - Speech disorder [Unknown]
  - Foetal exposure during pregnancy [Unknown]
  - Gait disturbance [Unknown]
  - Congenital neurological disorder [Unknown]
  - Prognathism [Unknown]
  - Otitis media [Unknown]
  - Congenital jaw malformation [Unknown]
  - Autism [Unknown]
  - Learning disorder [Unknown]
  - Neurodevelopmental disorder [Unknown]
